FAERS Safety Report 18848839 (Version 2)
Quarter: 2021Q1

REPORT INFORMATION
  Report Type: Spontaneous
  Country: JP (occurrence: JP)
  Receive Date: 20210204
  Receipt Date: 20210304
  Transmission Date: 20210419
  Serious: Yes (Other)
  Sender: FDA-Public Use
  Company Number: JP-AMGEN-JPNSP2020174640

PATIENT
  Age: 41 Year
  Sex: Female

DRUGS (27)
  1. G?LASTA [Suspect]
     Active Substance: PEGFILGRASTIM
     Dosage: 3.6 MILLIGRAM
     Route: 058
     Dates: start: 20200813, end: 20200813
  2. APREPITANT. [Concomitant]
     Active Substance: APREPITANT
     Dosage: 125 MILLIGRAM
     Route: 048
     Dates: start: 20200709, end: 20200825
  3. EPIRUBICIN [Concomitant]
     Active Substance: EPIRUBICIN
     Dosage: UNK MILLIGRAM, QD
     Route: 042
     Dates: start: 20200709, end: 20200709
  4. GRANISETRON [Concomitant]
     Active Substance: GRANISETRON
     Dosage: 50 MILLIGRAM, QD
     Route: 042
     Dates: start: 20200908, end: 20200908
  5. G?LASTA [Suspect]
     Active Substance: PEGFILGRASTIM
     Dosage: 3.6 MILLIGRAM
     Route: 058
     Dates: start: 20200910, end: 20200910
  6. BROTIZOLAM [Concomitant]
     Active Substance: BROTIZOLAM
     Dosage: UNK UNK, QD
     Route: 048
  7. DECADRON [Concomitant]
     Active Substance: DEXAMETHASONE
     Dosage: 1 MILLIGRAM
     Route: 048
     Dates: start: 20200710, end: 20200827
  8. FLUVOXAMINE MALEATE. [Concomitant]
     Active Substance: FLUVOXAMINE MALEATE
     Dosage: UNK UNK, QD
     Route: 048
  9. EPIRUBICIN [Concomitant]
     Active Substance: EPIRUBICIN
     Dosage: 150 MILLIGRAM, QD
     Route: 042
     Dates: start: 20200811, end: 20200811
  10. APREPITANT. [Concomitant]
     Active Substance: APREPITANT
     Dosage: 80 MILLIGRAM
     Route: 048
     Dates: start: 20200710, end: 20200827
  11. PACLITAXEL. [Concomitant]
     Active Substance: PACLITAXEL
     Dosage: 290 MILLIGRAM, QD
     Route: 042
     Dates: start: 20200908, end: 20200908
  12. GASTER [Concomitant]
     Active Substance: FAMOTIDINE
     Dosage: 20 MILLIGRAM, QD
     Route: 042
     Dates: start: 20200908, end: 20200908
  13. G?LASTA [Suspect]
     Active Substance: PEGFILGRASTIM
     Indication: PRODUCT USED FOR UNKNOWN INDICATION
     Dosage: 3.6 MILLIGRAM
     Route: 058
     Dates: start: 20200712, end: 20200712
  14. G?LASTA [Suspect]
     Active Substance: PEGFILGRASTIM
     Dosage: 3.6 MILLIGRAM
     Route: 058
     Dates: start: 20200827, end: 20200827
  15. DOMPERIDONE [Concomitant]
     Active Substance: DOMPERIDONE
     Dosage: 10 MILLIGRAM
     Route: 048
     Dates: start: 20200710, end: 20200731
  16. DEXART [Concomitant]
     Active Substance: DEXAMETHASONE SODIUM PHOSPHATE
     Dosage: 13.2 MILLIGRAM, QD
     Route: 042
     Dates: start: 20200908, end: 20200908
  17. EPIRUBICIN [Concomitant]
     Active Substance: EPIRUBICIN
     Dosage: 150 MILLIGRAM, QD
     Route: 042
     Dates: start: 20200728, end: 20200728
  18. EPIRUBICIN [Concomitant]
     Active Substance: EPIRUBICIN
     Dosage: 150 MILLIGRAM, QD
     Route: 042
     Dates: start: 20200825, end: 20200825
  19. ENDOXAN [CYCLOPHOSPHAMIDE MONOHYDRATE] [Concomitant]
     Active Substance: CYCLOPHOSPHAMIDE
     Dosage: 1000 MILLIGRAM, QD
     Route: 042
     Dates: start: 20200728, end: 20200728
  20. ENDOXAN [CYCLOPHOSPHAMIDE MONOHYDRATE] [Concomitant]
     Active Substance: CYCLOPHOSPHAMIDE
     Dosage: 1000 MILLIGRAM, QD
     Route: 042
     Dates: start: 20200811, end: 20200811
  21. ENDOXAN [CYCLOPHOSPHAMIDE MONOHYDRATE] [Concomitant]
     Active Substance: CYCLOPHOSPHAMIDE
     Dosage: 1000 MILLIGRAM, QD
     Route: 042
     Dates: start: 20200825, end: 20200825
  22. GOSHAJINKIGAN [Concomitant]
     Active Substance: HERBALS
     Dosage: 2.5 GRAM, TID
     Route: 048
     Dates: start: 20200908
  23. LEVOFLOXACIN HEMIHYDRATE [Concomitant]
     Active Substance: LEVOFLOXACIN
     Indication: INFECTION
     Dosage: 500 MILLIGRAM, QD
     Route: 048
     Dates: start: 20200811, end: 20200923
  24. DEXART [Concomitant]
     Active Substance: DEXAMETHASONE SODIUM PHOSPHATE
     Dosage: 6.6 MILLIGRAM
     Route: 042
     Dates: start: 20200728, end: 20200825
  25. ENDOXAN [CYCLOPHOSPHAMIDE MONOHYDRATE] [Concomitant]
     Active Substance: CYCLOPHOSPHAMIDE
     Dosage: UNK MILLIGRAM, QWK
     Route: 042
     Dates: start: 20200709, end: 20200709
  26. G?LASTA [Suspect]
     Active Substance: PEGFILGRASTIM
     Dosage: 3.6 MILLIGRAM
     Route: 058
     Dates: start: 20200730, end: 20200730
  27. ALOXI [Concomitant]
     Active Substance: PALONOSETRON HYDROCHLORIDE
     Dosage: 0.75 MILLIGRAM
     Route: 042
     Dates: start: 20200728, end: 20200825

REACTIONS (2)
  - Takayasu^s arteritis [Recovered/Resolved]
  - Blood pressure increased [Recovered/Resolved]

NARRATIVE: CASE EVENT DATE: 20200811
